FAERS Safety Report 23523488 (Version 1)
Quarter: 2024Q1

REPORT INFORMATION
  Report Type: Spontaneous
  Country: US (occurrence: None)
  Receive Date: 20240214
  Receipt Date: 20240214
  Transmission Date: 20240410
  Serious: Yes (Hospitalization)
  Sender: FDA-Public Use
  Company Number: None

PATIENT
  Age: 53 Year
  Sex: Male
  Weight: 88.9 kg

DRUGS (5)
  1. TOFACITINIB [Suspect]
     Active Substance: TOFACITINIB
     Indication: Rheumatoid arthritis
     Dosage: FREQUENCY : TWICE A DAY;?
     Route: 048
     Dates: start: 20180119, end: 20240126
  2. METHOTREXATE [Suspect]
     Active Substance: METHOTREXATE
  3. SILDENAFIL [Concomitant]
     Active Substance: SILDENAFIL
  4. FOLIC ACID [Concomitant]
     Active Substance: FOLIC ACID
  5. IBUPROFEN [Concomitant]
     Active Substance: IBUPROFEN

REACTIONS (1)
  - Pulmonary embolism [None]

NARRATIVE: CASE EVENT DATE: 20240119
